FAERS Safety Report 10408669 (Version 1)
Quarter: 2014Q3

REPORT INFORMATION
  Report Type: Spontaneous
  Country: GB (occurrence: None)
  Receive Date: 20140821
  Receipt Date: 20140821
  Transmission Date: 20150326
  Serious: Yes (Hospitalization)
  Sender: FDA-Public Use
  Company Number: AUR-APL-2014-08766

PATIENT
  Age: 85 Year
  Sex: Male

DRUGS (8)
  1. METFORMIN [Concomitant]
     Active Substance: METFORMIN HYDROCHLORIDE
  2. ASPIRIN (ACETYLSALICYLIC ACID) [Concomitant]
     Active Substance: ASPIRIN
  3. CYPROTERONE [Concomitant]
     Active Substance: CYPROTERONE
  4. LISINOPRIL. [Concomitant]
     Active Substance: LISINOPRIL
  5. PROSTAP (LEUPRORELIN ACETATE) [Concomitant]
  6. GLICLAZIDE [Concomitant]
     Active Substance: GLICLAZIDE
  7. SIMVASTATIN. [Concomitant]
     Active Substance: SIMVASTATIN
  8. TAMSULOSIN [Suspect]
     Active Substance: TAMSULOSIN
     Indication: PROSTATE CANCER
     Route: 048

REACTIONS (3)
  - Syncope [None]
  - Head injury [None]
  - Orthostatic hypotension [None]
